FAERS Safety Report 4563915-X (Version None)
Quarter: 2005Q1

REPORT INFORMATION
  Report Type: 
  Country: None (occurrence: None)
  Receive Date: 20050121
  Receipt Date: 20050103
  Transmission Date: 20050727
  Serious: Yes (Other)
  Sender: FDA-Public Use
  Company Number: USA050187276

PATIENT
  Sex: Male
  Weight: 66 kg

DRUGS (1)
  1. HUMALOG [Suspect]
     Dates: start: 19670101

REACTIONS (9)
  - AMNESIA [None]
  - BODY HEIGHT DECREASED [None]
  - CEREBROVASCULAR ACCIDENT [None]
  - DROOLING [None]
  - DYSPHAGIA [None]
  - OSTEOPOROSIS [None]
  - RENAL DISORDER [None]
  - TIC [None]
  - TRANSIENT ISCHAEMIC ATTACK [None]
